FAERS Safety Report 8493189-9 (Version None)
Quarter: 2012Q3

REPORT INFORMATION
  Report Type: 
  Country: None (occurrence: None)
  Receive Date: 20120706
  Receipt Date: 20120702
  Transmission Date: 20120928
  Serious: No
  Sender: FDA-Public Use
  Company Number: US-PFIZER INC-2012158686

PATIENT
  Sex: Female
  Weight: 73 kg

DRUGS (4)
  1. COREG [Concomitant]
     Dosage: UNK
  2. LASIX [Concomitant]
     Dosage: UNK
  3. GLUCOTROL XL [Suspect]
     Indication: DIABETES MELLITUS
     Dosage: 10 MG, 2X/DAY
     Route: 048
  4. DIOVAN [Concomitant]
     Dosage: UNK

REACTIONS (4)
  - MALAISE [None]
  - COUNTERFEIT DRUG ADMINISTERED [None]
  - NAUSEA [None]
  - FLATULENCE [None]
